FAERS Safety Report 8760246 (Version 1)
Quarter: 2012Q4

REPORT INFORMATION
  Report Type: Spontaneous
  Country: US (occurrence: None)
  Receive Date: 20120829
  Receipt Date: 20120829
  Transmission Date: 20130627
  Serious: Yes (Hospitalization)
  Sender: FDA-Public Use
  Company Number: None

PATIENT
  Age: 61 Year
  Sex: Male
  Weight: 98.88 kg

DRUGS (12)
  1. VICTOZA [Suspect]
     Indication: DIABETES MELLITUS
     Route: 058
     Dates: start: 20120501
  2. VICTOZA [Suspect]
     Indication: DIABETES MELLITUS
     Dates: start: 20120813
  3. INSULIN [Concomitant]
  4. LISPRO [Concomitant]
  5. FENOFIBRATE [Concomitant]
  6. ASPIRIN [Concomitant]
  7. OLMESARTAN [Concomitant]
  8. METFORMIN [Concomitant]
  9. LEVOTHYROXINE [Concomitant]
  10. GABAPENTIN [Concomitant]
  11. ZOLPIDEM [Concomitant]
  12. TRAZODONE [Concomitant]

REACTIONS (1)
  - Pancreatitis [None]
